FAERS Safety Report 18759866 (Version 2)
Quarter: 2021Q1

REPORT INFORMATION
  Report Type: Spontaneous
  Country: AU (occurrence: AU)
  Receive Date: 20210120
  Receipt Date: 20210203
  Transmission Date: 20210419
  Serious: Yes (Other)
  Sender: FDA-Public Use
  Company Number: AU-LUPIN PHARMACEUTICALS INC.-2021-00292

PATIENT
  Age: 35 Year
  Sex: Female

DRUGS (9)
  1. NALTREXONE [Suspect]
     Active Substance: NALTREXONE
     Indication: PRURITUS
     Dosage: UNK
     Route: 048
  2. OXYCODONE [Suspect]
     Active Substance: OXYCODONE
     Indication: PRODUCT USED FOR UNKNOWN INDICATION
     Dosage: UNK
     Route: 065
  3. CHOLESTYRAMINE. [Suspect]
     Active Substance: CHOLESTYRAMINE
     Dosage: 8 GRAM, BID
     Route: 065
  4. CHOLESTYRAMINE. [Suspect]
     Active Substance: CHOLESTYRAMINE
     Indication: CHOLESTASIS OF PREGNANCY
     Dosage: UNK
     Route: 065
  5. NALOXONE [Suspect]
     Active Substance: NALOXONE
     Indication: PRURITUS
     Dosage: UNK
     Route: 048
  6. RIFAMPIN. [Suspect]
     Active Substance: RIFAMPIN
     Indication: CHOLESTASIS OF PREGNANCY
     Dosage: UNK
     Route: 065
  7. URSODEOXYCHOLIC ACID [Suspect]
     Active Substance: URSODIOL
     Indication: CHOLESTASIS OF PREGNANCY
     Dosage: UNK
     Route: 065
  8. URSODEOXYCHOLIC ACID [Suspect]
     Active Substance: URSODIOL
     Dosage: 750 MILLIGRAM, TID (DOSE WAS UP?TITRATED TO 750 MG THRICE DAILY BY GESTATION WEEK?28+6)
     Route: 065
  9. LEVOTHYROXINE SODIUM. [Suspect]
     Active Substance: LEVOTHYROXINE SODIUM
     Indication: HYPOTHYROIDISM
     Dosage: UNK
     Route: 065

REACTIONS (5)
  - Drug ineffective [Unknown]
  - Pruritus [Recovered/Resolved]
  - Premature delivery [Unknown]
  - Exposure during pregnancy [Unknown]
  - Condition aggravated [Recovered/Resolved]
